FAERS Safety Report 10974987 (Version 1)
Quarter: 2015Q2

REPORT INFORMATION
  Report Type: Spontaneous
  Country: CN (occurrence: CN)
  Receive Date: 20150401
  Receipt Date: 20150401
  Transmission Date: 20150821
  Serious: Yes (Other)
  Sender: FDA-Public Use
  Company Number: CN-JNJFOC-20150319212

PATIENT

DRUGS (1)
  1. INFLIXIMAB, RECOMBINANT [Suspect]
     Active Substance: INFLIXIMAB
     Indication: ANKYLOSING SPONDYLITIS
     Route: 042

REACTIONS (15)
  - Palpitations [Unknown]
  - Infusion related reaction [Recovering/Resolving]
  - Pneumonia [Unknown]
  - Headache [Recovering/Resolving]
  - Treatment failure [Unknown]
  - Hypersensitivity [Unknown]
  - Otitis media [Unknown]
  - Rash [Recovering/Resolving]
  - Urinary tract infection [Unknown]
  - Abscess [Unknown]
  - Hypertension [Unknown]
  - Pruritus [Recovering/Resolving]
  - Tuberculosis [Unknown]
  - Nausea [Recovering/Resolving]
  - Abdominal pain [Unknown]
